FAERS Safety Report 5529314-9 (Version None)
Quarter: 2007Q4

REPORT INFORMATION
  Report Type: 
  Country: None (occurrence: None)
  Receive Date: 20071129
  Receipt Date: 20071127
  Transmission Date: 20080405
  Serious: Yes (Other)
  Sender: FDA-Public Use
  Company Number: US-JNJFOC-20071109728

PATIENT
  Sex: Male
  Weight: 70.31 kg

DRUGS (2)
  1. PEPCID COMPLETE [Suspect]
  2. PEPCID COMPLETE [Suspect]
     Indication: DYSPEPSIA

REACTIONS (1)
  - EPISTAXIS [None]
